FAERS Safety Report 11911129 (Version 1)
Quarter: 2016Q1

REPORT INFORMATION
  Report Type: Spontaneous
  Country: US (occurrence: US)
  Receive Date: 20160112
  Receipt Date: 20160112
  Transmission Date: 20160526
  Serious: Yes (Other)
  Sender: FDA-Public Use
  Company Number: US-MEDTRONIC-1046403

PATIENT
  Sex: Female

DRUGS (19)
  1. MULTIVITAMIN [Suspect]
     Active Substance: VITAMINS
     Route: 048
  2. ASCORBIC ACID. [Suspect]
     Active Substance: ASCORBIC ACID
  3. MAGNESIUM OXIDE. [Suspect]
     Active Substance: MAGNESIUM OXIDE
     Route: 048
  4. TRIMETHOPRIM. [Suspect]
     Active Substance: TRIMETHOPRIM
     Route: 048
  5. ARMOUR THYROID [Suspect]
     Active Substance: THYROID, PORCINE
     Route: 048
  6. CALCIUM MAGNESIUM 500/250 [Suspect]
     Active Substance: CALCIUM\MAGNESIUM
     Route: 048
  7. BACLOFEN UNKNOWN 5000 MCG/ML [Suspect]
     Active Substance: BACLOFEN
     Indication: MUSCLE SPASTICITY
  8. DEXEDRINE [Suspect]
     Active Substance: DEXTROAMPHETAMINE SULFATE
     Route: 048
  9. CYMBALTA [Suspect]
     Active Substance: DULOXETINE HYDROCHLORIDE
  10. VITAMIN D3DIETARY SUPPLEMEN DIETARY SUPPLEMENT [Suspect]
     Active Substance: ALPHA-TOCOPHEROL\CHOLECALCIFEROL
  11. AMINOPYRIDINE SR [Suspect]
     Active Substance: DALFAMPRIDINE
  12. XENADERM [Suspect]
     Active Substance: BALSAM PERU OIL\CASTOR OIL\TRYPSIN
     Route: 061
  13. L-METHYL-B6-B12 [Suspect]
     Active Substance: LEVOMEFOLATE CALCIUM\METHYLCOBALAMIN\PYRIDOXAL 5-PHOSPHATE
  14. NALTREXONE HYDROCHLORIDE. [Suspect]
     Active Substance: NALTREXONE HYDROCHLORIDE
  15. METHYL PRO [Suspect]
     Active Substance: LEVOMEFOLIC ACID
  16. CALMOSEPTINE [Suspect]
     Active Substance: MENTHOL\ZINC OXIDE
     Route: 061
  17. CRANBERRY. [Suspect]
     Active Substance: CRANBERRY
     Route: 048
  18. PROBIOTIC [Suspect]
     Active Substance: PROBIOTICS NOS
     Route: 048
  19. OMEGA 3 FATTY ACID FISH OIL [Suspect]
     Active Substance: FISH OIL

REACTIONS (6)
  - Fatigue [Unknown]
  - Urinary tract infection [Unknown]
  - Nausea [Unknown]
  - Malaise [Unknown]
  - Glomerular filtration rate increased [Unknown]
  - Muscular weakness [Unknown]
